FAERS Safety Report 18592440 (Version 1)
Quarter: 2020Q4

REPORT INFORMATION
  Report Type: Spontaneous
  Country: US (occurrence: US)
  Receive Date: 20201209
  Receipt Date: 20201209
  Transmission Date: 20210114
  Serious: Yes (Hospitalization, Other)
  Sender: FDA-Public Use
  Company Number: US-SA-2020SA346355

PATIENT

DRUGS (12)
  1. LORAZEPAM. [Suspect]
     Active Substance: LORAZEPAM
     Indication: INSOMNIA
  2. BUPROPION. [Concomitant]
     Active Substance: BUPROPION
     Indication: BIPOLAR II DISORDER
     Dosage: 200 MG, QD; SUSTAINED RELEASE
  3. DIVALPROEX SODIUM. [Concomitant]
     Active Substance: DIVALPROEX SODIUM
     Indication: BIPOLAR II DISORDER
     Dosage: 500 MG; QAM
  4. DIPHENHYDRAMINE. [Suspect]
     Active Substance: DIPHENHYDRAMINE
  5. LORAZEPAM. [Suspect]
     Active Substance: LORAZEPAM
     Indication: ANXIETY
     Dosage: 1-2 MG IV EVERY 4 HOURS PRN
     Route: 042
  6. ZOLPIDEM [Concomitant]
     Active Substance: ZOLPIDEM TARTRATE
     Indication: BIPOLAR II DISORDER
     Dosage: 10 MG, QHS
  7. PAROXETINE. [Concomitant]
     Active Substance: PAROXETINE
     Indication: BIPOLAR II DISORDER
     Dosage: 40 MG, QD
  8. TOPIRAMATE. [Concomitant]
     Active Substance: TOPIRAMATE
     Indication: BIPOLAR II DISORDER
     Dosage: 100 MG, QHS
  9. VALPROATE SODIUM. [Concomitant]
     Active Substance: VALPROATE SODIUM
     Indication: BIPOLAR II DISORDER
     Dosage: 250 MG, TID
     Route: 042
  10. LORAZEPAM. [Suspect]
     Active Substance: LORAZEPAM
     Indication: HYPOMANIA
  11. ALPRAZOLAM. [Concomitant]
     Active Substance: ALPRAZOLAM
     Indication: BIPOLAR II DISORDER
     Dosage: 0.25-0.5 MG EVERY 6 HOURS PRN ANXIETY
  12. DIVALPROEX SODIUM. [Concomitant]
     Active Substance: DIVALPROEX SODIUM
     Dosage: 250 MG QHS

REACTIONS (1)
  - Delirium [Recovered/Resolved]
